FAERS Safety Report 7021888-4 (Version None)
Quarter: 2010Q3

REPORT INFORMATION
  Report Type: 
  Country: None (occurrence: None)
  Receive Date: 20100930
  Receipt Date: 20100924
  Transmission Date: 20110219
  Serious: No
  Sender: FDA-Public Use
  Company Number: US-ROXANE LABORATORIES, INC.-2010-RO-01291RO

PATIENT
  Sex: Male

DRUGS (1)
  1. DEXAMETHASONE [Suspect]

REACTIONS (1)
  - BLOOD GLUCOSE DECREASED [None]
